FAERS Safety Report 24961788 (Version 1)
Quarter: 2025Q1

REPORT INFORMATION
  Report Type: Spontaneous
  Country: PT (occurrence: PT)
  Receive Date: 20250212
  Receipt Date: 20250212
  Transmission Date: 20250409
  Serious: Yes (Other)
  Sender: FRESENIUS KABI
  Company Number: None

PATIENT
  Age: 75 Year
  Sex: Female
  Weight: 62 kg

DRUGS (5)
  1. PACLITAXEL [Suspect]
     Active Substance: PACLITAXEL
     Indication: Ovarian cancer
     Dosage: EVERY 3 WEEKS?FOA: CONCENTRATE FOR SOLUTION FOR INFUSION
     Route: 042
     Dates: start: 20250122, end: 20250122
  2. Ranitidine [Ranitidine] [Concomitant]
     Indication: Product used for unknown indication
     Route: 042
     Dates: start: 20250122, end: 20250122
  3. Palonosetron [Palonosetron] [Concomitant]
     Indication: Product used for unknown indication
     Route: 042
     Dates: start: 20250122, end: 20250122
  4. DEXAMETHASONE [Concomitant]
     Active Substance: DEXAMETHASONE
     Indication: Product used for unknown indication
     Route: 042
     Dates: start: 20250122, end: 20250122
  5. APREPITANT [Concomitant]
     Active Substance: APREPITANT
     Indication: Product used for unknown indication
     Route: 048
     Dates: start: 20250122, end: 20250122

REACTIONS (3)
  - Flushing [Recovered/Resolved]
  - Hypoxia [Recovered/Resolved]
  - Loss of consciousness [Recovered/Resolved]

NARRATIVE: CASE EVENT DATE: 20250122
